FAERS Safety Report 20838488 (Version 1)
Quarter: 2022Q2

REPORT INFORMATION
  Report Type: Spontaneous
  Country: US (occurrence: None)
  Receive Date: 20220516
  Receipt Date: 20220516
  Transmission Date: 20220720
  Serious: Yes (Other)
  Sender: FDA-Public Use
  Company Number: None

PATIENT
  Age: 22 Year
  Sex: Female
  Weight: 85.9 kg

DRUGS (1)
  1. FERUMOXYTOL [Suspect]
     Active Substance: FERUMOXYTOL
     Indication: Anaemia
     Dosage: OTHER FREQUENCY : ONCE;?
     Route: 042
     Dates: start: 20220516, end: 20220516

REACTIONS (5)
  - Infusion related reaction [None]
  - Chest discomfort [None]
  - Dyspnoea [None]
  - Blood pressure increased [None]
  - Heart rate increased [None]

NARRATIVE: CASE EVENT DATE: 20220516
